FAERS Safety Report 11620665 (Version 1)
Quarter: 2015Q4

REPORT INFORMATION
  Report Type: Spontaneous
  Country: US (occurrence: US)
  Receive Date: 20151012
  Receipt Date: 20151012
  Transmission Date: 20160304
  Serious: Yes (Hospitalization)
  Sender: FDA-Public Use
  Company Number: US-VERTEX PHARMACEUTICALS-2015-004330

PATIENT
  Age: 57 Year
  Sex: Male

DRUGS (5)
  1. ITRACONAZOLE. [Concomitant]
     Active Substance: ITRACONAZOLE
     Indication: ARTHRITIS
     Dosage: UNK
     Dates: end: 2015
  2. PREDNISONE. [Concomitant]
     Active Substance: PREDNISONE
     Dosage: 3 TIMES THE DOSE NORMALLY TAKEN
  3. ORKAMBI [Suspect]
     Active Substance: IVACAFTOR\LUMACAFTOR
     Indication: CYSTIC FIBROSIS
     Dosage: 1 DF, QD
     Route: 048
  4. ITRACONAZOLE. [Concomitant]
     Active Substance: ITRACONAZOLE
     Dosage: INCREASED BY 300%
     Dates: start: 2015
  5. PREDNISONE. [Concomitant]
     Active Substance: PREDNISONE
     Indication: ARTHRITIS
     Dosage: UNK

REACTIONS (3)
  - Nasopharyngitis [Unknown]
  - Respiration abnormal [Unknown]
  - Dyspnoea [Unknown]
